FAERS Safety Report 23856368 (Version 2)
Quarter: 2024Q3

REPORT INFORMATION
  Report Type: Spontaneous
  Country: US (occurrence: US)
  Receive Date: 20240515
  Receipt Date: 20240712
  Transmission Date: 20241017
  Serious: Yes (Other)
  Sender: CSL BEHRING
  Company Number: US-BEH-2024171700

PATIENT

DRUGS (1)
  1. HEMGENIX [Suspect]
     Active Substance: ETRANACOGENE DEZAPARVOVEC
     Dosage: UNK
     Dates: start: 20240321

REACTIONS (2)
  - Alanine aminotransferase increased [Unknown]
  - Liver function test increased [Unknown]
